FAERS Safety Report 7677089-X (Version None)
Quarter: 2011Q3

REPORT INFORMATION
  Report Type: 
  Country: None (occurrence: None)
  Receive Date: 20110811
  Receipt Date: 20110801
  Transmission Date: 20111222
  Serious: Yes (Hospitalization)
  Sender: FDA-Public Use
  Company Number: US-JNJFOC-20100207148

PATIENT
  Sex: Female
  Weight: 37.6 kg

DRUGS (3)
  1. REMICADE [Suspect]
     Route: 042
     Dates: start: 20100129
  2. REMICADE [Suspect]
     Route: 042
     Dates: start: 20091217
  3. REMICADE [Suspect]
     Indication: CROHN'S DISEASE
     Route: 042
     Dates: start: 20070313

REACTIONS (2)
  - ANAEMIA [None]
  - CROHN'S DISEASE [None]
